FAERS Safety Report 5076175-0 (Version None)
Quarter: 2006Q3

REPORT INFORMATION
  Report Type: 
  Country: None (occurrence: None)
  Receive Date: 20060807
  Receipt Date: 20060726
  Transmission Date: 20061208
  Serious: Yes (Hospitalization, Other)
  Sender: FDA-Public Use
  Company Number: HQ5352915NOV2002

PATIENT
  Age: 34 Year
  Sex: Female
  Weight: 104.87 kg

DRUGS (2)
  1. MYLOTARG [Suspect]
     Indication: ACUTE MYELOID LEUKAEMIA
     Dosage: 7.5 MG 1X PER 1 DAY, INTRAVENOUS
     Route: 042
     Dates: start: 20021014, end: 20021014
  2. MYLOTARG [Suspect]
     Indication: ACUTE MYELOID LEUKAEMIA
     Dosage: 7.5 MG 1X PER 1 DAY, INTRAVENOUS
     Route: 042
     Dates: start: 20021029, end: 20021029

REACTIONS (3)
  - ANORECTAL INFECTION [None]
  - ESCHERICHIA BACTERAEMIA [None]
  - FEBRILE NEUTROPENIA [None]
